FAERS Safety Report 5191165-5 (Version None)
Quarter: 2006Q4

REPORT INFORMATION
  Report Type: 
  Country: None (occurrence: None)
  Receive Date: 20061220
  Receipt Date: 20061220
  Transmission Date: 20070319
  Serious: Yes (Hospitalization)
  Sender: FDA-Public Use
  Company Number: None

PATIENT
  Age: 87 Year
  Sex: Male
  Weight: 81.6475 kg

DRUGS (11)
  1. MIDAZOLAM HYDROCHLORIDE [Suspect]
     Indication: SEDATION
     Dosage: 3 MG IV
     Route: 042
     Dates: start: 20060725
  2. FENTANYL TRANSDERMAL SYSTEM [Suspect]
     Indication: SEDATION
     Dosage: 500 MCG IV
     Route: 042
     Dates: start: 20060725
  3. ZOCOR [Concomitant]
  4. ACTOS [Concomitant]
  5. CALCIUM [Concomitant]
  6. M.V.I. [Concomitant]
  7. AVANDAMET [Concomitant]
  8. FLOMAX [Concomitant]
  9. UROXATRAL [Concomitant]
  10. COUMADIN [Concomitant]
  11. DITROPAN XL [Concomitant]

REACTIONS (3)
  - OXYGEN SATURATION DECREASED [None]
  - RESPIRATORY ARREST [None]
  - SKIN DISCOLOURATION [None]
